FAERS Safety Report 6375756-1 (Version None)
Quarter: 2009Q3

REPORT INFORMATION
  Report Type: 
  Country: None (occurrence: None)
  Receive Date: 20090921
  Receipt Date: 20090901
  Transmission Date: 20100115
  Serious: Yes (Hospitalization)
  Sender: FDA-Public Use
  Company Number: B0592841A

PATIENT
  Age: 47 Year
  Sex: Female

DRUGS (3)
  1. LAMOTRIGINE [Suspect]
  2. DILTIAZEM HYDROCHLORIDE [Suspect]
     Dosage: 600 MG/SINGLE DOSE
  3. CITALOPRAM HYDROBROMIDE [Suspect]

REACTIONS (7)
  - CONVULSION [None]
  - HAEMODIALYSIS [None]
  - HEPATIC ENZYME INCREASED [None]
  - HYPOTENSION [None]
  - MULTIPLE DRUG OVERDOSE [None]
  - PANCREATITIS ACUTE [None]
  - RENAL FAILURE [None]
